FAERS Safety Report 12095409 (Version 1)
Quarter: 2016Q1

REPORT INFORMATION
  Report Type: Report from Study
  Country: PR (occurrence: US)
  Receive Date: 20160219
  Receipt Date: 20160219
  Transmission Date: 20160526
  Serious: Yes (Hospitalization)
  Sender: FDA-Public Use
  Company Number: PR-ACTELION-A-US2013-92983

PATIENT
  Age: 23 Year
  Sex: Male

DRUGS (2)
  1. TRACLEER [Suspect]
     Active Substance: BOSENTAN
     Indication: PULMONARY ARTERIAL HYPERTENSION
     Dosage: 62.5 MG, BID
     Route: 048
  2. DIGOXIN. [Concomitant]
     Active Substance: DIGOXIN
     Dosage: 0.25 MG, UNK
     Route: 048

REACTIONS (2)
  - Drug dose omission [Unknown]
  - Influenza [Recovered/Resolved]
